FAERS Safety Report 4562608-2 (Version None)
Quarter: 2005Q1

REPORT INFORMATION
  Report Type: 
  Country: None (occurrence: None)
  Receive Date: 20050127
  Receipt Date: 20050107
  Transmission Date: 20050727
  Serious: No
  Sender: FDA-Public Use
  Company Number: JP-MERCK-0501USA00914

PATIENT
  Age: 55 Year
  Sex: Female
  Weight: 52 kg

DRUGS (11)
  1. PRIMAXIN [Suspect]
     Indication: BRONCHITIS
     Route: 041
     Dates: start: 20050105
  2. NITROGLYCERIN [Concomitant]
     Indication: CARDIAC FAILURE
     Route: 041
     Dates: start: 20050104
  3. FOY [Concomitant]
     Indication: PANCREATITIS ACUTE
     Route: 041
     Dates: start: 20050105
  4. NICARDIPINE HCL [Concomitant]
     Indication: CARDIAC FAILURE
     Route: 042
     Dates: start: 20050105, end: 20050110
  5. NICARDIPINE HCL [Concomitant]
     Indication: HYPERTONIA
     Route: 042
     Dates: start: 20050105, end: 20050110
  6. LASIX [Concomitant]
     Indication: CARDIAC FAILURE
     Route: 041
  7. NUTRITIONAL SUPPLEMENTS [Concomitant]
     Indication: NUTRITIONAL SUPPORT
     Route: 041
  8. PEPCID [Concomitant]
     Indication: GASTRIC ULCER
     Route: 041
     Dates: start: 20050104
  9. PEPCID [Concomitant]
     Indication: VENTRICULAR FAILURE
     Route: 041
     Dates: start: 20050104
  10. DIPRIVAN [Concomitant]
     Indication: RESPIRATORY FAILURE
     Route: 041
     Dates: start: 20050104, end: 20050110
  11. NOVOLIN R [Concomitant]
     Indication: DIABETES MELLITUS
     Route: 041
     Dates: start: 20050104

REACTIONS (1)
  - PUPILS UNEQUAL [None]
